FAERS Safety Report 7569730-7 (Version None)
Quarter: 2011Q2

REPORT INFORMATION
  Report Type: 
  Country: None (occurrence: None)
  Receive Date: 20110617
  Receipt Date: 20110606
  Transmission Date: 20111010
  Serious: Yes (Other)
  Sender: FDA-Public Use
  Company Number: CERZ-1000888

PATIENT
  Age: 80 Year
  Sex: Female
  Weight: 86.6 kg

DRUGS (12)
  1. IBUPROFEN [Concomitant]
  2. AMLODIPINE [Concomitant]
  3. CEREZYME [Suspect]
     Indication: GAUCHER'S DISEASE
     Dosage: 55.4 U/KG, Q2W, INTRAVENOUS
     Route: 042
     Dates: start: 19940101
  4. CALCIUM (CALCIUM) [Concomitant]
  5. VITAMIN D [Concomitant]
  6. PRILOSEC [Concomitant]
  7. LISINOPRIL AND HYDROCHLOROTHIAZIDE [Concomitant]
  8. ZOMETA [Suspect]
     Indication: OSTEOPOROSIS
     Dosage: 4 MG, Q4W,
     Dates: start: 20020429, end: 20050404
  9. PERIGUARD MOUTH RINSE [Concomitant]
  10. ASPIRIN [Concomitant]
  11. METOPROLOL (HYDROCHLOROTHIAZIDE) [Concomitant]
  12. OXYCODONE HCL [Concomitant]

REACTIONS (2)
  - OSTEONECROSIS OF JAW [None]
  - DENTAL CARIES [None]
